FAERS Safety Report 6252001-9 (Version None)
Quarter: 2009Q2

REPORT INFORMATION
  Report Type: 
  Country: None (occurrence: None)
  Receive Date: 20090630
  Receipt Date: 20041229
  Transmission Date: 20091009
  Serious: Yes (Hospitalization)
  Sender: FDA-Public Use
  Company Number: US-ROCHE-638386

PATIENT
  Sex: Male

DRUGS (17)
  1. ENFUVIRTIDE [Suspect]
     Route: 065
     Dates: start: 20040202, end: 20070717
  2. INVIRASE [Concomitant]
     Dates: start: 20040202, end: 20041219
  3. VIDEX [Concomitant]
     Dates: start: 20040202, end: 20041219
  4. VIREAD [Concomitant]
     Dates: start: 20040202, end: 20041219
  5. NORVIR [Concomitant]
     Dates: start: 20040202, end: 20070717
  6. EPIZONE E [Concomitant]
     Dates: start: 20041220, end: 20070717
  7. PREZISTA [Concomitant]
     Dates: start: 20041220, end: 20050322
  8. PREZISTA [Concomitant]
     Dates: start: 20050323, end: 20070717
  9. FLAGYL [Concomitant]
     Dates: start: 20040211, end: 20040221
  10. VALCYTE [Concomitant]
     Dates: start: 20040211, end: 20040221
  11. CEPHALEXIN [Concomitant]
     Dates: start: 20040227, end: 20040304
  12. ROCEPHIN [Concomitant]
     Dates: start: 20040302, end: 20040304
  13. DIFLUCAN [Concomitant]
     Dates: start: 20040329, end: 20041229
  14. VALCYTE [Concomitant]
     Dates: start: 20040329, end: 20041229
  15. LEVAQUIN [Concomitant]
     Dates: start: 20040426, end: 20040510
  16. LEVAQUIN [Concomitant]
     Dates: start: 20041229, end: 20050202
  17. CEFTIN [Concomitant]
     Dates: start: 20041229, end: 20050202

REACTIONS (1)
  - UPPER RESPIRATORY TRACT INFECTION [None]
